FAERS Safety Report 9063959 (Version 1)
Quarter: 2013Q1

REPORT INFORMATION
  Report Type: Report from Study
  Country: BR (occurrence: BR)
  Receive Date: 20130213
  Receipt Date: 20130213
  Transmission Date: 20140127
  Serious: Yes (Hospitalization)
  Sender: FDA-Public Use
  Company Number: BR-ROCHE-1189958

PATIENT
  Sex: Female
  Weight: 58 kg

DRUGS (12)
  1. MABTHERA [Suspect]
     Indication: INFLAMMATION
     Route: 065
     Dates: start: 201009
  2. MABTHERA [Suspect]
     Route: 065
     Dates: start: 201103
  3. MABTHERA [Suspect]
     Route: 065
     Dates: start: 201110
  4. MABTHERA [Suspect]
     Route: 065
     Dates: start: 201206
  5. PROLOPA [Concomitant]
  6. BIPERIDEN [Concomitant]
  7. ALENDRONATE [Concomitant]
  8. DEPURA [Concomitant]
  9. CALDE [Concomitant]
  10. MAREVAN [Concomitant]
  11. FOLIC ACID [Concomitant]
     Route: 065
  12. METHOTREXATE [Concomitant]

REACTIONS (1)
  - Pulmonary embolism [Recovered/Resolved]
